FAERS Safety Report 14929744 (Version 2)
Quarter: 2020Q3

REPORT INFORMATION
  Report Type: Spontaneous
  Country: US (occurrence: US)
  Receive Date: 20180523
  Receipt Date: 20200828
  Transmission Date: 20201102
  Serious: Yes (Death, Other)
  Sender: FDA-Public Use
  Company Number: US-ASTRAZENECA-2018SE65021

PATIENT
  Age: 20508 Day
  Sex: Female

DRUGS (59)
  1. NEXIUM [Suspect]
     Active Substance: ESOMEPRAZOLE MAGNESIUM
     Indication: GASTROOESOPHAGEAL REFLUX DISEASE
     Route: 048
     Dates: start: 200604, end: 201102
  2. NEXIUM [Suspect]
     Active Substance: ESOMEPRAZOLE MAGNESIUM
     Indication: GASTROOESOPHAGEAL REFLUX DISEASE
     Route: 048
     Dates: start: 201504, end: 201605
  3. NEXIUM [Suspect]
     Active Substance: ESOMEPRAZOLE MAGNESIUM
     Indication: GASTROOESOPHAGEAL REFLUX DISEASE
     Route: 065
     Dates: start: 20070510
  4. AMITRIPTYLINE [Concomitant]
     Active Substance: AMITRIPTYLINE
     Dates: start: 200403, end: 200406
  5. FUROSEMIDE. [Concomitant]
     Active Substance: FUROSEMIDE
     Dates: start: 200502, end: 201605
  6. CYCLOBENZAPRINE. [Concomitant]
     Active Substance: CYCLOBENZAPRINE
     Dates: start: 200712, end: 201212
  7. SIMVASTATIN. [Concomitant]
     Active Substance: SIMVASTATIN
     Dates: start: 200811, end: 201605
  8. PENTAZOCINE [Concomitant]
     Active Substance: PENTAZOCINE
  9. GLUCOPHAGE [Concomitant]
     Active Substance: METFORMIN HYDROCHLORIDE
  10. IMITREX [Concomitant]
     Active Substance: SUMATRIPTAN SUCCINATE
  11. OMEPRAZOLE. [Suspect]
     Active Substance: OMEPRAZOLE
     Indication: GASTROOESOPHAGEAL REFLUX DISEASE
     Dosage: GENERIC
     Route: 065
     Dates: start: 201102, end: 201107
  12. LORAZEPAM. [Concomitant]
     Active Substance: LORAZEPAM
     Dates: start: 200401, end: 200510
  13. NORVASC [Concomitant]
     Active Substance: AMLODIPINE BESYLATE
     Dates: start: 200604, end: 200611
  14. MULTIVITAMINS [Concomitant]
     Active Substance: VITAMINS
  15. WELLBUTRIN [Concomitant]
     Active Substance: BUPROPION HYDROCHLORIDE
  16. CLIMARA [Concomitant]
     Active Substance: ESTRADIOL
  17. NEXIUM [Suspect]
     Active Substance: ESOMEPRAZOLE MAGNESIUM
     Indication: GASTROOESOPHAGEAL REFLUX DISEASE
     Dosage: GENERIC
     Route: 065
     Dates: start: 201503
  18. NEXIUM [Suspect]
     Active Substance: ESOMEPRAZOLE MAGNESIUM
     Indication: GASTROOESOPHAGEAL REFLUX DISEASE
     Route: 065
     Dates: start: 20070123
  19. LORAZEPAM. [Concomitant]
     Active Substance: LORAZEPAM
     Dates: start: 201208, end: 201605
  20. HYDROCODONE BITARTRATE AND ACETAMINOPHEN [Concomitant]
     Active Substance: ACETAMINOPHEN\HYDROCODONE BITARTRATE
  21. BACLOFEN. [Concomitant]
     Active Substance: BACLOFEN
  22. MIRALAX [Concomitant]
     Active Substance: POLYETHYLENE GLYCOL 3350
  23. CELEBREX [Concomitant]
     Active Substance: CELECOXIB
  24. NAPROXEN. [Concomitant]
     Active Substance: NAPROXEN
  25. DIFLUCAN [Concomitant]
     Active Substance: FLUCONAZOLE
  26. NEXIUM [Suspect]
     Active Substance: ESOMEPRAZOLE MAGNESIUM
     Indication: GASTROOESOPHAGEAL REFLUX DISEASE
     Route: 048
     Dates: start: 2006, end: 2016
  27. NEXIUM [Suspect]
     Active Substance: ESOMEPRAZOLE MAGNESIUM
     Indication: GASTROOESOPHAGEAL REFLUX DISEASE
     Route: 065
     Dates: start: 20061220
  28. NEXIUM [Suspect]
     Active Substance: ESOMEPRAZOLE MAGNESIUM
     Indication: GASTROOESOPHAGEAL REFLUX DISEASE
     Route: 065
     Dates: start: 20070411
  29. ZOLOFT [Concomitant]
     Active Substance: SERTRALINE HYDROCHLORIDE
     Dates: start: 200208, end: 200401
  30. ALLOPURINOL. [Concomitant]
     Active Substance: ALLOPURINOL
  31. ALPRAZOLAM. [Concomitant]
     Active Substance: ALPRAZOLAM
  32. METOPROLOL. [Concomitant]
     Active Substance: METOPROLOL
  33. ENALAPRIL [Concomitant]
     Active Substance: ENALAPRIL
  34. NEXIUM [Suspect]
     Active Substance: ESOMEPRAZOLE MAGNESIUM
     Indication: GASTROOESOPHAGEAL REFLUX DISEASE
     Route: 048
     Dates: start: 201108, end: 201502
  35. NEXIUM [Suspect]
     Active Substance: ESOMEPRAZOLE MAGNESIUM
     Indication: GASTROOESOPHAGEAL REFLUX DISEASE
     Route: 065
     Dates: start: 20061031
  36. NEXIUM [Suspect]
     Active Substance: ESOMEPRAZOLE MAGNESIUM
     Indication: GASTROOESOPHAGEAL REFLUX DISEASE
     Route: 065
     Dates: start: 20060328
  37. TRAZODONE [Concomitant]
     Active Substance: TRAZODONE HYDROCHLORIDE
     Dates: start: 200611, end: 201605
  38. VITAMIN D [Concomitant]
     Active Substance: VITAMIN D NOS
  39. FISH OIL [Concomitant]
     Active Substance: FISH OIL
  40. LODINE [Concomitant]
     Active Substance: ETODOLAC
  41. ACTOS [Concomitant]
     Active Substance: PIOGLITAZONE HYDROCHLORIDE
  42. NEXIUM [Suspect]
     Active Substance: ESOMEPRAZOLE MAGNESIUM
     Indication: GASTROOESOPHAGEAL REFLUX DISEASE
     Route: 048
  43. NEXIUM [Suspect]
     Active Substance: ESOMEPRAZOLE MAGNESIUM
     Indication: GASTROOESOPHAGEAL REFLUX DISEASE
     Route: 065
     Dates: start: 20060328
  44. LISINOPRIL. [Concomitant]
     Active Substance: LISINOPRIL
     Dates: start: 200811, end: 201201
  45. METHADONE [Concomitant]
     Active Substance: METHADONE HYDROCHLORIDE
  46. AMOX/KCLAV [Concomitant]
  47. NEXIUM [Suspect]
     Active Substance: ESOMEPRAZOLE MAGNESIUM
     Indication: GASTROOESOPHAGEAL REFLUX DISEASE
     Route: 065
     Dates: start: 20070411
  48. AMLODIPINE [Concomitant]
     Active Substance: AMLODIPINE BESYLATE
     Dates: start: 200707, end: 201605
  49. CYMBALTA [Concomitant]
     Active Substance: DULOXETINE HYDROCHLORIDE
  50. VITAMIN B [Concomitant]
     Active Substance: VITAMIN B
  51. SEROQUEL [Concomitant]
     Active Substance: QUETIAPINE FUMARATE
  52. PIROXICAM. [Concomitant]
     Active Substance: PIROXICAM
  53. ZYRTEC [Concomitant]
     Active Substance: CETIRIZINE HYDROCHLORIDE
  54. VEETIDS [Concomitant]
     Active Substance: PENICILLIN V POTASSIUM
  55. LEVAQUIN [Concomitant]
     Active Substance: LEVOFLOXACIN
  56. RISPERDAL [Concomitant]
     Active Substance: RISPERIDONE
  57. FUROSEMIDE. [Concomitant]
     Active Substance: FUROSEMIDE
  58. DIOVAN [Concomitant]
     Active Substance: VALSARTAN
  59. WARFARIN [Concomitant]
     Active Substance: WARFARIN

REACTIONS (2)
  - Chronic kidney disease [Unknown]
  - Anxiety [Unknown]

NARRATIVE: CASE EVENT DATE: 20120611
